FAERS Safety Report 6932874-4 (Version None)
Quarter: 2010Q3

REPORT INFORMATION
  Report Type: 
  Country: None (occurrence: None)
  Receive Date: 20100813
  Receipt Date: 20100504
  Transmission Date: 20110219
  Serious: No
  Sender: FDA-Public Use
  Company Number: 1000013568

PATIENT
  Age: 52 Year
  Sex: Female

DRUGS (12)
  1. SAVELLA [Suspect]
     Indication: FIBROMYALGIA
     Dosage: SEE IMAGE, ORAL
     Route: 048
     Dates: start: 20100401, end: 20100401
  2. SAVELLA [Suspect]
     Indication: FIBROMYALGIA
     Dosage: SEE IMAGE, ORAL
     Route: 048
     Dates: start: 20100401, end: 20100401
  3. SAVELLA [Suspect]
     Indication: FIBROMYALGIA
     Dosage: SEE IMAGE, ORAL
     Route: 048
     Dates: start: 20100401, end: 20100401
  4. SAVELLA [Suspect]
     Indication: FIBROMYALGIA
     Dosage: 100 MG (50 MG, 2 IN 1 D), ORAL, 50 MG (50 MG, 1 IN 1 D), ORAL
     Route: 048
     Dates: start: 20100401, end: 20100429
  5. SAVELLA [Suspect]
     Indication: FIBROMYALGIA
     Dosage: 100 MG (50 MG, 2 IN 1 D), ORAL, 50 MG (50 MG, 1 IN 1 D), ORAL
     Route: 048
     Dates: start: 20100430
  6. CYMBALTA [Concomitant]
  7. LYRICA [Concomitant]
  8. LOTENSIN [Concomitant]
  9. FLEXERIL [Concomitant]
  10. VICODIN ES [Concomitant]
  11. PROAIR HFA [Concomitant]
  12. SYMBICORT [Concomitant]

REACTIONS (3)
  - DIZZINESS [None]
  - HYPERHIDROSIS [None]
  - NAUSEA [None]
